FAERS Safety Report 8536505-1 (Version None)
Quarter: 2012Q3

REPORT INFORMATION
  Report Type: 
  Country: None (occurrence: None)
  Receive Date: 20120725
  Receipt Date: 20120724
  Transmission Date: 20120928
  Serious: Yes (Life-Threatening, Other)
  Sender: FDA-Public Use
  Company Number: PHHY2012AU063608

PATIENT
  Sex: Female

DRUGS (1)
  1. EXFORGE HCT [Suspect]
     Indication: BLOOD PRESSURE ABNORMAL
     Dosage: 160/10/12.5 MG
     Dates: start: 20120515

REACTIONS (5)
  - FEELING ABNORMAL [None]
  - BLOOD PRESSURE FLUCTUATION [None]
  - CONSTIPATION [None]
  - DRUG INTOLERANCE [None]
  - BACK PAIN [None]
